FAERS Safety Report 8903212 (Version 2)
Quarter: 2012Q4

REPORT INFORMATION
  Report Type: 
  Country: GB (occurrence: GB)
  Receive Date: 20121113
  Receipt Date: 20121217
  Transmission Date: 20130627
  Serious: Yes (Other)
  Sender: FDA-Public Use
  Company Number: GB-SANOFI-AVENTIS-2012SA080284

PATIENT
  Age: 62 Year
  Sex: Female
  Weight: 71.4 kg

DRUGS (5)
  1. MULTAQ [Suspect]
     Indication: ATRIAL FIBRILLATION
     Route: 048
     Dates: start: 20121006, end: 20121011
  2. BISOPROLOL [Concomitant]
     Indication: ATRIAL FIBRILLATION
     Route: 048
  3. DOXAZOSIN [Concomitant]
     Indication: BLOOD PRESSURE
     Route: 048
  4. WARFARIN [Concomitant]
     Indication: ATRIAL FIBRILLATION
     Route: 048
  5. FUROSEMIDE [Concomitant]
     Indication: DRUG USE FOR UNKNOWN INDICATION
     Route: 048

REACTIONS (3)
  - Angina pectoris [Recovered/Resolved]
  - Chest pain [Recovered/Resolved]
  - Dyspnoea exertional [Recovered/Resolved]
